FAERS Safety Report 14290845 (Version 1)
Quarter: 2017Q4

REPORT INFORMATION
  Report Type: Report from Study
  Country: DE (occurrence: DE)
  Receive Date: 20171215
  Receipt Date: 20171215
  Transmission Date: 20180321
  Serious: Yes (Other)
  Sender: FDA-Public Use
  Company Number: DE-JNJFOC-20171215111

PATIENT
  Age: 29 Year
  Sex: Male

DRUGS (1)
  1. STELARA [Suspect]
     Active Substance: USTEKINUMAB
     Indication: PSORIASIS
     Route: 058
     Dates: start: 201701

REACTIONS (6)
  - Off label use [Unknown]
  - Product use issue [Unknown]
  - Onychalgia [Unknown]
  - Skin discolouration [Unknown]
  - Genital erythema [Unknown]
  - Nail bed disorder [Unknown]

NARRATIVE: CASE EVENT DATE: 2017
